FAERS Safety Report 5009532-9 (Version None)
Quarter: 2006Q2

REPORT INFORMATION
  Report Type: 
  Country: None (occurrence: None)
  Receive Date: 20060522
  Receipt Date: 20060508
  Transmission Date: 20061013
  Serious: Yes (Other)
  Sender: FDA-Public Use
  Company Number: 2006061727

PATIENT
  Sex: Female

DRUGS (4)
  1. LYRICA [Suspect]
     Indication: ILL-DEFINED DISORDER
     Dates: end: 20060101
  2. ZOLOFT [Suspect]
     Indication: ILL-DEFINED DISORDER
  3. CYMBALTA [Suspect]
     Indication: ILL-DEFINED DISORDER
  4. ALL OTHER THERAPEUTIC PRODUCTS (ALL OTHER THERAPEUTIC PRODUCTS) [Suspect]
     Indication: ILL-DEFINED DISORDER

REACTIONS (1)
  - SEROTONIN SYNDROME [None]
